FAERS Safety Report 4912926-0 (Version None)
Quarter: 2006Q1

REPORT INFORMATION
  Report Type: 
  Country: None (occurrence: None)
  Receive Date: 20060215
  Receipt Date: 20060213
  Transmission Date: 20060701
  Serious: Yes (Life-Threatening, Hospitalization)
  Sender: FDA-Public Use
  Company Number: US-GLAXOSMITHKLINE-A0593391A

PATIENT
  Age: 58 Year
  Sex: Male

DRUGS (12)
  1. SIMPLE HEADACHE + MUSCULAR PAIN PWR [Suspect]
     Indication: HEADACHE
     Route: 048
  2. TOPROL-XL [Concomitant]
  3. NORVASC [Concomitant]
  4. ACCURETIC [Concomitant]
  5. ISOSORBIDE [Concomitant]
  6. NIASPAN [Concomitant]
  7. ZOCOR [Concomitant]
  8. ASPIRIN [Concomitant]
  9. SLEEPING PILLS [Concomitant]
  10. TRIAMCINOLONE [Concomitant]
  11. CEFZIL [Concomitant]
  12. DOXYCYCLINE HYCLATE [Concomitant]

REACTIONS (13)
  - AMNESIA [None]
  - BLOOD CHOLESTEROL INCREASED [None]
  - BLOOD PRESSURE INCREASED [None]
  - CHEST PAIN [None]
  - COMA [None]
  - COUGH [None]
  - DEPENDENCE [None]
  - DYSPEPSIA [None]
  - LOSS OF CONSCIOUSNESS [None]
  - MYOCARDIAL INFARCTION [None]
  - OEDEMA PERIPHERAL [None]
  - PNEUMONIA [None]
  - STAPHYLOCOCCAL INFECTION [None]
